FAERS Safety Report 7559720-2 (Version None)
Quarter: 2011Q2

REPORT INFORMATION
  Report Type: 
  Country: None (occurrence: None)
  Receive Date: 20110621
  Receipt Date: 20110613
  Transmission Date: 20111010
  Serious: Yes (Hospitalization)
  Sender: FDA-Public Use
  Company Number: DZ-ROCHE-778648

PATIENT
  Sex: Female

DRUGS (1)
  1. AVASTIN [Suspect]
     Indication: BREAST CANCER
     Dosage: FORM: INFUSION, FREQUENCY: PER CURE
     Route: 050
     Dates: start: 20110330, end: 20110401

REACTIONS (7)
  - DRUG HYPERSENSITIVITY [None]
  - TACHYCARDIA [None]
  - ANXIETY [None]
  - GENERAL PHYSICAL HEALTH DETERIORATION [None]
  - VENOUS THROMBOSIS [None]
  - PYREXIA [None]
  - PALPITATIONS [None]
